FAERS Safety Report 25437594 (Version 2)
Quarter: 2025Q2

REPORT INFORMATION
  Report Type: Spontaneous
  Country: CA (occurrence: CA)
  Receive Date: 20250616
  Receipt Date: 20250624
  Transmission Date: 20250717
  Serious: Yes (Death, Life-Threatening, Hospitalization, Disabling, Congenital Anomaly, Other)
  Sender: Haleon PLC
  Company Number: CA-002147023-NVSC2025CA051249

PATIENT
  Age: 43 Year
  Sex: Female
  Weight: 96 kg

DRUGS (189)
  1. FLONASE [Suspect]
     Active Substance: FLUTICASONE PROPIONATE
     Indication: Product used for unknown indication
  2. VOLTAREN [Suspect]
     Active Substance: DICLOFENAC SODIUM
     Indication: Product used for unknown indication
  3. MINOCYCLINE [Suspect]
     Active Substance: MINOCYCLINE HYDROCHLORIDE
     Indication: Product used for unknown indication
  4. VITAMIN C [Suspect]
     Active Substance: ASCORBIC ACID
     Indication: Product used for unknown indication
     Dosage: 10 MG, QD
  5. METHOTREXATE [Suspect]
     Active Substance: METHOTREXATE
     Indication: Rheumatoid arthritis
     Dosage: 25 MG, QD
  6. METHOTREXATE [Suspect]
     Active Substance: METHOTREXATE
     Dosage: 20 MG, QD
  7. METHOTREXATE [Suspect]
     Active Substance: METHOTREXATE
     Dosage: 20 MG, QD
     Route: 048
  8. METHOTREXATE [Suspect]
     Active Substance: METHOTREXATE
     Dosage: 25 MG, QD
     Route: 048
  9. RAMIPRIL [Suspect]
     Active Substance: RAMIPRIL
     Indication: Rheumatoid arthritis
  10. RAMIPRIL [Suspect]
     Active Substance: RAMIPRIL
  11. RAMIPRIL [Suspect]
     Active Substance: RAMIPRIL
     Route: 016
  12. CETIRIZINE HYDROCHLORIDE [Suspect]
     Active Substance: CETIRIZINE HYDROCHLORIDE
     Indication: Off label use
     Route: 048
  13. CETIRIZINE HYDROCHLORIDE [Suspect]
     Active Substance: CETIRIZINE HYDROCHLORIDE
     Indication: Rheumatoid arthritis
     Route: 048
  14. CETIRIZINE HYDROCHLORIDE [Suspect]
     Active Substance: CETIRIZINE HYDROCHLORIDE
  15. CETIRIZINE HYDROCHLORIDE [Suspect]
     Active Substance: CETIRIZINE HYDROCHLORIDE
  16. VITAMIN A [Suspect]
     Active Substance: VITAMIN A
     Indication: Product used for unknown indication
  17. CORTISONE ACETATE [Suspect]
     Active Substance: CORTISONE ACETATE
     Indication: Rheumatoid arthritis
  18. SODIUM AUROTIOSULFATE [Suspect]
     Active Substance: SODIUM AUROTIOSULFATE
     Indication: Product used for unknown indication
     Route: 050
  19. SODIUM AUROTIOSULFATE [Suspect]
     Active Substance: SODIUM AUROTIOSULFATE
     Route: 030
  20. MAGNESIUM [Suspect]
     Active Substance: MAGNESIUM
     Indication: Product used for unknown indication
     Dosage: 1 DOSAGE FORM, QD
  21. MAGNESIUM [Suspect]
     Active Substance: MAGNESIUM
  22. TOPIRAMATE [Suspect]
     Active Substance: TOPIRAMATE
     Indication: Product used for unknown indication
     Dosage: 25 MG, BID (2 EVERY 1 DAYS)
  23. TOPIRAMATE [Suspect]
     Active Substance: TOPIRAMATE
     Indication: Migraine
     Dosage: 25 MG, BID (2 EVERY 1 DAYS)
  24. TOPIRAMATE [Suspect]
     Active Substance: TOPIRAMATE
     Dosage: 1 MG, QD
  25. TOPIRAMATE [Suspect]
     Active Substance: TOPIRAMATE
  26. TOPIRAMATE [Suspect]
     Active Substance: TOPIRAMATE
     Dosage: 25 MG, QD
  27. TOPIRAMATE [Suspect]
     Active Substance: TOPIRAMATE
     Dosage: 25 MG, QD
  28. TOPIRAMATE [Suspect]
     Active Substance: TOPIRAMATE
     Dosage: 3 MG, QD
  29. TOPIRAMATE [Suspect]
     Active Substance: TOPIRAMATE
     Indication: Migraine
     Dosage: 25 MG, QD
  30. TOPIRAMATE [Suspect]
     Active Substance: TOPIRAMATE
     Dosage: 3 MG, QD
  31. COSENTYX [Suspect]
     Active Substance: SECUKINUMAB
     Indication: Psoriatic arthropathy
  32. COSENTYX [Suspect]
     Active Substance: SECUKINUMAB
  33. PANTOPRAZOLE [Suspect]
     Active Substance: PANTOPRAZOLE
     Indication: Product used for unknown indication
     Dosage: 3 DOSAGE FORM, QD
  34. PANTOPRAZOLE [Suspect]
     Active Substance: PANTOPRAZOLE
  35. PANTOPRAZOLE [Suspect]
     Active Substance: PANTOPRAZOLE
  36. PANTOPRAZOLE [Suspect]
     Active Substance: PANTOPRAZOLE
     Dosage: 1 DOSAGE FORM, Q12H
  37. PANTOPRAZOLE [Suspect]
     Active Substance: PANTOPRAZOLE
     Dosage: 3 DOSAGE FORM, QD
  38. PANTOPRAZOLE [Suspect]
     Active Substance: PANTOPRAZOLE
     Dosage: 1 DOSAGE FORM, QD
  39. PANTOPRAZOLE [Suspect]
     Active Substance: PANTOPRAZOLE
     Dosage: 2 DOSAGE FORM, QD
  40. PANTOPRAZOLE [Suspect]
     Active Substance: PANTOPRAZOLE
     Dosage: 2 DOSAGE FORM, QD
  41. PANTOPRAZOLE [Suspect]
     Active Substance: PANTOPRAZOLE
  42. PANTOPRAZOLE [Suspect]
     Active Substance: PANTOPRAZOLE
  43. PANTOPRAZOLE [Suspect]
     Active Substance: PANTOPRAZOLE
  44. PANTOPRAZOLE [Suspect]
     Active Substance: PANTOPRAZOLE
     Dosage: 2 DOSAGE FORM, QD
  45. PANTOPRAZOLE [Suspect]
     Active Substance: PANTOPRAZOLE
  46. PANTOPRAZOLE [Suspect]
     Active Substance: PANTOPRAZOLE
     Dosage: 3 DOSAGE FORM, QD
  47. PANTOPRAZOLE [Suspect]
     Active Substance: PANTOPRAZOLE
     Dosage: 3 DOSAGE FORM, QD
  48. DOMPERIDONE [Suspect]
     Active Substance: DOMPERIDONE
     Indication: Product used for unknown indication
  49. CELECOXIB [Suspect]
     Active Substance: CELECOXIB
     Indication: Product used for unknown indication
     Dosage: 1 DOSAGE FORM, QD
  50. CELECOXIB [Suspect]
     Active Substance: CELECOXIB
     Dosage: 1 DOSAGE FORM, QD
  51. FLUMETHASONE PIVALATE [Suspect]
     Active Substance: FLUMETHASONE PIVALATE
     Indication: Product used for unknown indication
     Route: 048
  52. SULFASALAZINE [Suspect]
     Active Substance: SULFASALAZINE
     Indication: Rheumatoid arthritis
  53. SULFASALAZINE [Suspect]
     Active Substance: SULFASALAZINE
     Dosage: 1 G, QD
  54. SULFASALAZINE [Suspect]
     Active Substance: SULFASALAZINE
     Dosage: 2 G, QD
     Route: 048
  55. SULFASALAZINE [Suspect]
     Active Substance: SULFASALAZINE
     Route: 048
  56. SULFASALAZINE [Suspect]
     Active Substance: SULFASALAZINE
     Route: 048
  57. SULFASALAZINE [Suspect]
     Active Substance: SULFASALAZINE
     Dosage: 2 MG, QD
  58. SULFASALAZINE [Suspect]
     Active Substance: SULFASALAZINE
     Dosage: 300 MG, QD
  59. SULFASALAZINE [Suspect]
     Active Substance: SULFASALAZINE
     Route: 048
  60. SULFASALAZINE [Suspect]
     Active Substance: SULFASALAZINE
     Dosage: 300 MG, QD
     Route: 048
  61. SULFASALAZINE [Suspect]
     Active Substance: SULFASALAZINE
  62. SULFASALAZINE [Suspect]
     Active Substance: SULFASALAZINE
  63. SULFASALAZINE [Suspect]
     Active Substance: SULFASALAZINE
  64. CALTRATE [Suspect]
     Active Substance: CALCIUM CARBONATE
     Indication: Product used for unknown indication
  65. CALTRATE [Suspect]
     Active Substance: CALCIUM CARBONATE
  66. ERELZI [Suspect]
     Active Substance: ETANERCEPT-SZZS
     Indication: Rheumatoid arthritis
  67. ADALIMUMAB [Suspect]
     Active Substance: ADALIMUMAB
     Indication: Rheumatoid arthritis
  68. ADALIMUMAB [Suspect]
     Active Substance: ADALIMUMAB
     Route: 058
  69. AIMOVIG [Suspect]
     Active Substance: ERENUMAB-AOOE
     Indication: Rheumatoid arthritis
  70. AIMOVIG [Suspect]
     Active Substance: ERENUMAB-AOOE
     Indication: Migraine
  71. ACETAMINOPHEN AND CODEINE [Suspect]
     Active Substance: ACETAMINOPHEN\CODEINE PHOSPHATE
     Indication: Rheumatoid arthritis
  72. ERGOCALCIFEROL [Suspect]
     Active Substance: ERGOCALCIFEROL
     Indication: Product used for unknown indication
  73. HYDROXYCHLOROQUINE [Suspect]
     Active Substance: HYDROXYCHLOROQUINE
     Indication: Rheumatoid arthritis
     Dosage: 400 MG, QD
  74. HYDROXYCHLOROQUINE [Suspect]
     Active Substance: HYDROXYCHLOROQUINE
  75. HYDROXYCHLOROQUINE [Suspect]
     Active Substance: HYDROXYCHLOROQUINE
  76. HYDROXYCHLOROQUINE [Suspect]
     Active Substance: HYDROXYCHLOROQUINE
  77. ATOMOXETINE [Suspect]
     Active Substance: ATOMOXETINE
     Indication: Migraine
  78. TRIAMCINOLONE [Suspect]
     Active Substance: TRIAMCINOLONE
     Indication: Product used for unknown indication
  79. TRIAMCINOLONE [Suspect]
     Active Substance: TRIAMCINOLONE
     Dosage: 1 DOSAGE FORM, BID (2 EVERY 1 DAYS)
  80. TRIAMCINOLONE [Suspect]
     Active Substance: TRIAMCINOLONE
  81. TRIAMCINOLONE [Suspect]
     Active Substance: TRIAMCINOLONE
  82. TRIAMCINOLONE [Suspect]
     Active Substance: TRIAMCINOLONE
  83. TRIAMCINOLONE [Suspect]
     Active Substance: TRIAMCINOLONE
  84. TRIAMCINOLONE [Suspect]
     Active Substance: TRIAMCINOLONE
     Dosage: 3 MG, QD
  85. TRIAMCINOLONE [Suspect]
     Active Substance: TRIAMCINOLONE
     Dosage: 25 MG, BID (2 EVERY 1 DAYS)
  86. TRIAMCINOLONE [Suspect]
     Active Substance: TRIAMCINOLONE
     Dosage: 1 DOSAGE FORM, BID (2 EVERY 1 DAYS (SUSPENSION)
  87. TRIAMCINOLONE [Suspect]
     Active Substance: TRIAMCINOLONE
     Dosage: 25 MG, TID (3 EVERY 1 DAYS)
  88. LEVOMILNACIPRAN [Suspect]
     Active Substance: LEVOMILNACIPRAN
     Indication: Product used for unknown indication
  89. TRETINOIN [Suspect]
     Active Substance: TRETINOIN
     Indication: Product used for unknown indication
  90. PSEUDOEPHEDRINE HYDROCHLORIDE [Suspect]
     Active Substance: PSEUDOEPHEDRINE HYDROCHLORIDE
     Indication: Rheumatoid arthritis
  91. PSEUDOEPHEDRINE HYDROCHLORIDE [Suspect]
     Active Substance: PSEUDOEPHEDRINE HYDROCHLORIDE
  92. PSEUDOEPHEDRINE HYDROCHLORIDE [Suspect]
     Active Substance: PSEUDOEPHEDRINE HYDROCHLORIDE
  93. PSEUDOEPHEDRINE HYDROCHLORIDE [Suspect]
     Active Substance: PSEUDOEPHEDRINE HYDROCHLORIDE
  94. PSEUDOEPHEDRINE HYDROCHLORIDE [Suspect]
     Active Substance: PSEUDOEPHEDRINE HYDROCHLORIDE
  95. PSEUDOEPHEDRINE HYDROCHLORIDE [Suspect]
     Active Substance: PSEUDOEPHEDRINE HYDROCHLORIDE
  96. AZATHIOPRINE [Suspect]
     Active Substance: AZATHIOPRINE
     Indication: Product used for unknown indication
  97. CYANOCOBALAMIN [Suspect]
     Active Substance: CYANOCOBALAMIN
     Indication: Product used for unknown indication
  98. CIMZIA [Suspect]
     Active Substance: CERTOLIZUMAB PEGOL
     Indication: Psoriasis
  99. CIMZIA [Suspect]
     Active Substance: CERTOLIZUMAB PEGOL
     Indication: Rheumatoid arthritis
  100. TRAMADOL HYDROCHLORIDE [Suspect]
     Active Substance: TRAMADOL HYDROCHLORIDE
     Indication: Product used for unknown indication
  101. NAPROXEN [Suspect]
     Active Substance: NAPROXEN
     Indication: Rheumatoid arthritis
     Dosage: 1 DOSAGE FORM, QD
  102. NAPROXEN [Suspect]
     Active Substance: NAPROXEN
     Dosage: 1 DOSAGE FORM, BID (2 EVERY 1 DAYS)
  103. NAPROXEN [Suspect]
     Active Substance: NAPROXEN
  104. NAPROXEN [Suspect]
     Active Substance: NAPROXEN
  105. NAPROXEN [Suspect]
     Active Substance: NAPROXEN
     Dosage: 4 DOSAGE FORM, QD
  106. NAPROXEN [Suspect]
     Active Substance: NAPROXEN
     Dosage: 2 DOSAGE FORM, BID (2 EVERY 1 DAYS)
  107. NAPROXEN [Suspect]
     Active Substance: NAPROXEN
  108. NAPROXEN [Suspect]
     Active Substance: NAPROXEN
  109. NAPROXEN [Suspect]
     Active Substance: NAPROXEN
     Dosage: 2 DOSAGE FORM, QD
  110. NAPROXEN [Suspect]
     Active Substance: NAPROXEN
     Dosage: 2 DOSAGE FORM, Q12H
  111. NAPROXEN [Suspect]
     Active Substance: NAPROXEN
  112. PHENYLEPHRINE HYDROCHLORIDE [Suspect]
     Active Substance: PHENYLEPHRINE HYDROCHLORIDE
     Indication: Rheumatoid arthritis
  113. GOLD SODIUM THIOMALATE [Suspect]
     Active Substance: GOLD SODIUM THIOMALATE
     Indication: Product used for unknown indication
  114. RITUXIMAB [Suspect]
     Active Substance: RITUXIMAB
     Indication: Rheumatoid arthritis
     Route: 050
  115. RITUXIMAB [Suspect]
     Active Substance: RITUXIMAB
     Route: 058
  116. RITUXIMAB [Suspect]
     Active Substance: RITUXIMAB
     Route: 050
  117. RITUXIMAB [Suspect]
     Active Substance: RITUXIMAB
     Route: 043
  118. PREDNISONE [Suspect]
     Active Substance: PREDNISONE
     Indication: Rheumatoid arthritis
     Route: 048
  119. PREDNISONE [Suspect]
     Active Substance: PREDNISONE
     Route: 048
  120. PREDNISONE [Suspect]
     Active Substance: PREDNISONE
  121. PREDNISONE [Suspect]
     Active Substance: PREDNISONE
  122. PREDNISONE [Suspect]
     Active Substance: PREDNISONE
     Route: 048
  123. PREDNISONE [Suspect]
     Active Substance: PREDNISONE
  124. BERINERT [Suspect]
     Active Substance: HUMAN C1-ESTERASE INHIBITOR
     Indication: Product used for unknown indication
  125. ORENCIA [Suspect]
     Active Substance: ABATACEPT
     Indication: Rheumatoid arthritis
  126. BUPRENORPHINE HYDROCHLORIDE [Suspect]
     Active Substance: BUPRENORPHINE HYDROCHLORIDE
     Indication: Product used for unknown indication
  127. NUCALA [Suspect]
     Active Substance: MEPOLIZUMAB
     Indication: Product used for unknown indication
  128. SIMPONI [Suspect]
     Active Substance: GOLIMUMAB
     Indication: Rheumatoid arthritis
     Route: 058
  129. SIMPONI [Suspect]
     Active Substance: GOLIMUMAB
  130. SIMPONI [Suspect]
     Active Substance: GOLIMUMAB
  131. SIMPONI [Suspect]
     Active Substance: GOLIMUMAB
     Route: 058
  132. FOLIC ACID [Suspect]
     Active Substance: FOLIC ACID
     Indication: Rheumatoid arthritis
     Route: 048
  133. FOLIC ACID [Suspect]
     Active Substance: FOLIC ACID
  134. FOLIC ACID [Suspect]
     Active Substance: FOLIC ACID
  135. FOLIC ACID [Suspect]
     Active Substance: FOLIC ACID
  136. FOLIC ACID [Suspect]
     Active Substance: FOLIC ACID
  137. SIRUKUMAB [Suspect]
     Active Substance: SIRUKUMAB
     Indication: Product used for unknown indication
  138. OTEZLA [Suspect]
     Active Substance: APREMILAST
     Indication: Rheumatoid arthritis
  139. FOSAMAX [Suspect]
     Active Substance: ALENDRONATE SODIUM
     Indication: Rheumatoid arthritis
  140. ACETAMINOPHEN [Suspect]
     Active Substance: ACETAMINOPHEN
     Indication: Product used for unknown indication
  141. OXYCODONE [Suspect]
     Active Substance: OXYCODONE
     Indication: Product used for unknown indication
  142. CANDESARTAN [Suspect]
     Active Substance: CANDESARTAN
     Indication: Migraine
  143. CANDESARTAN [Suspect]
     Active Substance: CANDESARTAN
     Indication: Rheumatoid arthritis
     Route: 048
  144. CANDESARTAN [Suspect]
     Active Substance: CANDESARTAN
     Route: 048
  145. CANDESARTAN [Suspect]
     Active Substance: CANDESARTAN
     Route: 048
  146. PAROXETINE [Suspect]
     Active Substance: PAROXETINE
     Indication: Product used for unknown indication
  147. METHYLPREDNISOLONE [Suspect]
     Active Substance: METHYLPREDNISOLONE
     Indication: Product used for unknown indication
  148. RANITIDINE [Suspect]
     Active Substance: RANITIDINE
     Indication: Rheumatoid arthritis
     Route: 058
  149. RANITIDINE [Suspect]
     Active Substance: RANITIDINE
  150. RANITIDINE [Suspect]
     Active Substance: RANITIDINE
  151. RANITIDINE [Suspect]
     Active Substance: RANITIDINE
  152. RANITIDINE [Suspect]
     Active Substance: RANITIDINE
  153. RANITIDINE [Suspect]
     Active Substance: RANITIDINE
     Route: 058
  154. PHTHALYLSULFATHIAZOLE [Suspect]
     Active Substance: PHTHALYLSULFATHIAZOLE
     Indication: Rheumatoid arthritis
  155. PHTHALYLSULFATHIAZOLE [Suspect]
     Active Substance: PHTHALYLSULFATHIAZOLE
  156. PHTHALYLSULFATHIAZOLE [Suspect]
     Active Substance: PHTHALYLSULFATHIAZOLE
  157. BOTULINUM TOXIN TYPE A [Suspect]
     Active Substance: BOTULINUM TOXIN TYPE A
     Indication: Product used for unknown indication
  158. BOTULINUM TOXIN TYPE A [Suspect]
     Active Substance: BOTULINUM TOXIN TYPE A
     Route: 030
  159. ACTEMRA [Suspect]
     Active Substance: TOCILIZUMAB
     Indication: Rheumatoid arthritis
  160. ACTEMRA [Suspect]
     Active Substance: TOCILIZUMAB
  161. ACTEMRA [Suspect]
     Active Substance: TOCILIZUMAB
  162. ACTEMRA [Suspect]
     Active Substance: TOCILIZUMAB
     Route: 058
  163. ACTEMRA [Suspect]
     Active Substance: TOCILIZUMAB
  164. ACTEMRA [Suspect]
     Active Substance: TOCILIZUMAB
  165. ACTEMRA [Suspect]
     Active Substance: TOCILIZUMAB
  166. ACTEMRA [Suspect]
     Active Substance: TOCILIZUMAB
  167. ACTEMRA [Suspect]
     Active Substance: TOCILIZUMAB
  168. ACTEMRA [Suspect]
     Active Substance: TOCILIZUMAB
  169. ACTEMRA [Suspect]
     Active Substance: TOCILIZUMAB
  170. XELJANZ [Suspect]
     Active Substance: TOFACITINIB CITRATE
     Indication: Rheumatoid arthritis
     Dosage: 10 MG, QD
  171. BETAMETHASONE [Suspect]
     Active Substance: BETAMETHASONE
     Indication: Product used for unknown indication
  172. CYCLOBENZAPRINE HYDROCHLORIDE [Suspect]
     Active Substance: CYCLOBENZAPRINE HYDROCHLORIDE
     Indication: Product used for unknown indication
     Dosage: 1 DOSAGE FORM, QD
  173. CALCIUM ASCORBATE [Suspect]
     Active Substance: CALCIUM ASCORBATE
     Indication: Product used for unknown indication
  174. LAMOTRIGINE [Suspect]
     Active Substance: LAMOTRIGINE
     Indication: Product used for unknown indication
     Route: 048
  175. LAMOTRIGINE [Suspect]
     Active Substance: LAMOTRIGINE
     Route: 048
  176. LAMOTRIGINE [Suspect]
     Active Substance: LAMOTRIGINE
  177. LAMOTRIGINE [Suspect]
     Active Substance: LAMOTRIGINE
  178. LAMOTRIGINE [Suspect]
     Active Substance: LAMOTRIGINE
     Route: 048
  179. LAMOTRIGINE [Suspect]
     Active Substance: LAMOTRIGINE
     Route: 048
  180. DESOXIMETASONE [Suspect]
     Active Substance: DESOXIMETASONE
     Indication: Rheumatoid arthritis
     Route: 048
  181. DESOXIMETASONE [Suspect]
     Active Substance: DESOXIMETASONE
  182. DESOXIMETASONE [Suspect]
     Active Substance: DESOXIMETASONE
  183. DESOXIMETASONE [Suspect]
     Active Substance: DESOXIMETASONE
     Route: 058
  184. DESOXIMETASONE [Suspect]
     Active Substance: DESOXIMETASONE
  185. LEFLUNOMIDE [Suspect]
     Active Substance: LEFLUNOMIDE
     Indication: Rheumatoid arthritis
     Dosage: 10 MG, QD
  186. LEFLUNOMIDE [Suspect]
     Active Substance: LEFLUNOMIDE
     Dosage: 20 MG, QD
  187. ERENUMAB [Suspect]
     Active Substance: ERENUMAB
     Indication: Migraine
  188. INFLIXIMAB [Suspect]
     Active Substance: INFLIXIMAB
     Indication: Rheumatoid arthritis
  189. INFLIXIMAB [Suspect]
     Active Substance: INFLIXIMAB

REACTIONS (82)
  - Pulmonary fibrosis [Fatal]
  - Dislocation of vertebra [Fatal]
  - Lung disorder [Fatal]
  - Rheumatoid arthritis [Fatal]
  - Gait inability [Fatal]
  - Malaise [Fatal]
  - Injury [Fatal]
  - Product use in unapproved indication [Fatal]
  - Pyrexia [Fatal]
  - Autoimmune disorder [Fatal]
  - Nail disorder [Fatal]
  - Psoriatic arthropathy [Fatal]
  - Drug ineffective [Fatal]
  - Swelling [Fatal]
  - Systemic lupus erythematosus [Fatal]
  - Nausea [Fatal]
  - Pain in extremity [Fatal]
  - Inflammation [Fatal]
  - Muscle injury [Fatal]
  - Nasopharyngitis [Fatal]
  - Abdominal discomfort [Fatal]
  - Hand deformity [Fatal]
  - Folliculitis [Fatal]
  - Facet joint syndrome [Fatal]
  - Osteoarthritis [Fatal]
  - Helicobacter infection [Fatal]
  - Bursitis [Fatal]
  - Alopecia [Fatal]
  - Urticaria [Fatal]
  - Pain [Fatal]
  - Discomfort [Fatal]
  - Onychomadesis [Fatal]
  - Blood cholesterol increased [Fatal]
  - Musculoskeletal pain [Fatal]
  - Blepharospasm [Fatal]
  - Vomiting [Fatal]
  - Blister [Fatal]
  - Breast cancer stage II [Fatal]
  - Synovitis [Fatal]
  - Rash [Fatal]
  - Pemphigus [Fatal]
  - Arthralgia [Fatal]
  - Musculoskeletal stiffness [Fatal]
  - Glossodynia [Fatal]
  - General physical health deterioration [Fatal]
  - Liver injury [Fatal]
  - Drug intolerance [Fatal]
  - Rheumatic fever [Fatal]
  - Peripheral venous disease [Fatal]
  - Breast cancer stage III [Fatal]
  - Peripheral swelling [Fatal]
  - Pneumonia [Fatal]
  - Memory impairment [Fatal]
  - Epilepsy [Fatal]
  - Hypoaesthesia [Fatal]
  - Dizziness [Fatal]
  - Neck pain [Fatal]
  - Lip dry [Fatal]
  - Fibromyalgia [Fatal]
  - Asthenia [Fatal]
  - Normal newborn [Fatal]
  - Oedema [Fatal]
  - Bone erosion [Fatal]
  - Gastrooesophageal reflux disease [Fatal]
  - Back injury [Fatal]
  - Taste disorder [Fatal]
  - Muscle spasms [Fatal]
  - Type 2 diabetes mellitus [Fatal]
  - Lower respiratory tract infection [Fatal]
  - Abdominal pain upper [Fatal]
  - Sleep disorder [Fatal]
  - Obesity [Fatal]
  - Stomatitis [Fatal]
  - Paraesthesia [Fatal]
  - C-reactive protein [Fatal]
  - Liver function test increased [Fatal]
  - Mobility decreased [Fatal]
  - Muscular weakness [Fatal]
  - Night sweats [Fatal]
  - Lupus vulgaris [Fatal]
  - Arthropathy [Fatal]
  - Anti-cyclic citrullinated peptide antibody positive [Fatal]
